FAERS Safety Report 7592069-0 (Version None)
Quarter: 2011Q3

REPORT INFORMATION
  Report Type: 
  Country: None (occurrence: None)
  Receive Date: 20110705
  Receipt Date: 20110705
  Transmission Date: 20111222
  Serious: Yes (Other)
  Sender: FDA-Public Use
  Company Number: None

PATIENT
  Age: 84 Year
  Sex: Female

DRUGS (3)
  1. SIMVASTATIN [Concomitant]
  2. OMEPRAZOLE [Concomitant]
  3. REVLIMID [Suspect]
     Indication: MYELODYSPLASTIC SYNDROME
     Dosage: REVLIMID 10MG DAILY ORALLY
     Route: 048
     Dates: start: 20110608, end: 20110620

REACTIONS (5)
  - PLATELET COUNT DECREASED [None]
  - DYSPNOEA [None]
  - MALAISE [None]
  - FATIGUE [None]
  - NEUTROPHIL COUNT DECREASED [None]
